FAERS Safety Report 20434480 (Version 1)
Quarter: 2022Q1

REPORT INFORMATION
  Report Type: Report from Study
  Country: EG (occurrence: EG)
  Receive Date: 20220206
  Receipt Date: 20220206
  Transmission Date: 20220424
  Serious: Yes (Other)
  Sender: FDA-Public Use
  Company Number: EG-NOVARTISPH-NVSC2022EG024098

PATIENT
  Age: 43 Year
  Sex: Male

DRUGS (6)
  1. COSENTYX [Suspect]
     Active Substance: SECUKINUMAB
     Indication: Psoriasis
     Dosage: 1 DOSAGE FORM, QMO (FOR 6 MONTHS BUT THE PATIENT ADMINISTERED 150 MG ONE PREFILLED PEN MONTHLY FOR 3
     Route: 058
     Dates: start: 202110, end: 202112
  2. CLOBETASOL [Concomitant]
     Active Substance: CLOBETASOL
     Indication: Psoriasis
     Dosage: THREE TIMES PER DAY
     Route: 065
     Dates: start: 2004
  3. BETADERM [Concomitant]
     Active Substance: BETAMETHASONE VALERATE
     Indication: Psoriasis
     Dosage: THREE TIMES PER DAY
     Route: 065
     Dates: start: 2004
  4. KENACOMB [Concomitant]
     Indication: Psoriasis
     Dosage: THREE TIMES PER DAY
     Route: 065
     Dates: start: 2004
  5. GARAMYCIN [Concomitant]
     Active Substance: GENTAMICIN SULFATE
     Indication: Psoriasis
     Dosage: THREE TIMES PER DAY
     Route: 065
     Dates: start: 2004
  6. DERMAZIN [Concomitant]
     Indication: Product used for unknown indication
     Dosage: THREE TIMES PER DAY
     Route: 065
     Dates: start: 2004

REACTIONS (11)
  - Arthralgia [Not Recovered/Not Resolved]
  - Muscle spasms [Not Recovered/Not Resolved]
  - Pruritus [Not Recovered/Not Resolved]
  - Concomitant disease aggravated [Not Recovered/Not Resolved]
  - Psoriasis [Not Recovered/Not Resolved]
  - Oedema [Not Recovered/Not Resolved]
  - Neuritis [Not Recovered/Not Resolved]
  - Fatigue [Not Recovered/Not Resolved]
  - Nervousness [Not Recovered/Not Resolved]
  - Product distribution issue [Not Recovered/Not Resolved]
  - Inappropriate schedule of product administration [Unknown]

NARRATIVE: CASE EVENT DATE: 20211001
